FAERS Safety Report 11243430 (Version 2)
Quarter: 2015Q3

REPORT INFORMATION
  Report Type: Report from Study
  Country: US (occurrence: US)
  Receive Date: 20150707
  Receipt Date: 20150814
  Transmission Date: 20151125
  Serious: No
  Sender: FDA-Public Use
  Company Number: PHEH2015US002873

PATIENT
  Age: 60 Year
  Sex: Female
  Weight: 63.95 kg

DRUGS (3)
  1. BENICAR HCT [Concomitant]
     Active Substance: HYDROCHLOROTHIAZIDE\OLMESARTAN MEDOXOMIL
     Dosage: UNK, QD
     Route: 065
  2. BENICAR HCT [Concomitant]
     Active Substance: HYDROCHLOROTHIAZIDE\OLMESARTAN MEDOXOMIL
     Indication: BLOOD PRESSURE INCREASED
     Dosage: UNK UNK, QW
     Route: 065
  3. GILENYA [Suspect]
     Active Substance: FINGOLIMOD HYDROCHLORIDE
     Indication: MULTIPLE SCLEROSIS
     Dosage: 0.5 MG, QD
     Route: 048
     Dates: start: 20150116

REACTIONS (17)
  - Feeling abnormal [Recovering/Resolving]
  - Memory impairment [Recovering/Resolving]
  - Fatigue [Recovered/Resolved]
  - Dysarthria [Recovering/Resolving]
  - Multiple sclerosis relapse [Recovered/Resolved]
  - Crying [Unknown]
  - Apathy [Recovered/Resolved]
  - Tooth infection [Recovering/Resolving]
  - Diplopia [Recovered/Resolved]
  - Weight decreased [Unknown]
  - Blood pressure increased [Recovering/Resolving]
  - Product packaging issue [Unknown]
  - Feeling abnormal [Recovered/Resolved]
  - Depressed mood [Recovered/Resolved]
  - Hemiparesis [Recovered/Resolved]
  - Eating disorder [Unknown]
  - Condition aggravated [Recovering/Resolving]

NARRATIVE: CASE EVENT DATE: 20150210
